FAERS Safety Report 7065404-X (Version None)
Quarter: 2010Q4

REPORT INFORMATION
  Report Type: 
  Country: None (occurrence: None)
  Receive Date: 20101019
  Receipt Date: 20101005
  Transmission Date: 20110411
  Serious: Yes (Death, Hospitalization, Other)
  Sender: FDA-Public Use
  Company Number: KV201000218

PATIENT
  Age: 26 Year
  Sex: Male
  Weight: 105.2 kg

DRUGS (10)
  1. BUSPIRONE HYDROCHLORIDE [Suspect]
     Indication: ANXIETY
     Dosage: 5 MG, BID, ORAL
     Route: 048
     Dates: start: 20080506, end: 20081126
  2. TYLENOL W/ CODEINE [Concomitant]
  3. DIAZEPAM [Concomitant]
  4. VICODIN [Concomitant]
  5. PENICILLIN-VK [Concomitant]
  6. CLINDAMYCIN [Concomitant]
  7. SODIUM FLUORIDE (SODIUM FLUORIDE) [Concomitant]
  8. WELLBUTRIN [Concomitant]
  9. CHLORPHENIRAMINE MALEATE [Concomitant]
  10. DEXTROMETHORPHAN HYDROBROMIDE [Concomitant]

REACTIONS (25)
  - ABDOMINAL PAIN [None]
  - ACUTE MYOCARDIAL INFARCTION [None]
  - ATRIAL FIBRILLATION [None]
  - ATRIOVENTRICULAR BLOCK [None]
  - BACK PAIN [None]
  - BRAIN OEDEMA [None]
  - CARDIAC ARREST [None]
  - CARDIOGENIC SHOCK [None]
  - CARDIOMEGALY [None]
  - CORONARY ARTERY DISEASE [None]
  - CORONARY ARTERY OCCLUSION [None]
  - CORONARY ARTERY THROMBOSIS [None]
  - DIABETES MELLITUS [None]
  - DIABETIC KETOACIDOSIS [None]
  - ELECTROMECHANICAL DISSOCIATION [None]
  - HEPATIC STEATOSIS [None]
  - HEPATOMEGALY [None]
  - HYPERLIPIDAEMIA [None]
  - HYPONATRAEMIA [None]
  - MALAISE [None]
  - PAIN [None]
  - RESPIRATORY DISTRESS [None]
  - SPLENOMEGALY [None]
  - UNRESPONSIVE TO STIMULI [None]
  - VENTRICULAR FIBRILLATION [None]
